FAERS Safety Report 24540964 (Version 1)
Quarter: 2024Q4

REPORT INFORMATION
  Report Type: Spontaneous
  Country: DK (occurrence: DK)
  Receive Date: 20241023
  Receipt Date: 20241023
  Transmission Date: 20250115
  Serious: Yes (Other)
  Sender: AMGEN
  Company Number: DK-AMGEN-DNKSP2024207383

PATIENT
  Sex: Male

DRUGS (3)
  1. PROLIA [Suspect]
     Active Substance: DENOSUMAB
     Indication: Infertility
     Dosage: 60 MILLIGRAM PER MILLILITRE, SINGLE INJECTION
     Route: 058
  2. VITAMIN D3 [Concomitant]
     Active Substance: CHOLECALCIFEROL
     Dosage: 25 MICROGRAM, QD
  3. CALCIUM [Concomitant]
     Active Substance: CALCIUM
     Dosage: 400 MILLIGRAM

REACTIONS (2)
  - Testis cancer [Unknown]
  - Off label use [Unknown]
